FAERS Safety Report 12880381 (Version 2)
Quarter: 2016Q4

REPORT INFORMATION
  Report Type: Report from Study
  Country: US (occurrence: US)
  Receive Date: 20161025
  Receipt Date: 20161109
  Transmission Date: 20170207
  Serious: Yes (Other)
  Sender: FDA-Public Use
  Company Number: US-ROCHE-1772438

PATIENT
  Age: 20 Year
  Sex: Female
  Weight: 108.96 kg

DRUGS (16)
  1. PLAQUENIL [Concomitant]
     Active Substance: HYDROXYCHLOROQUINE SULFATE
     Dosage: DRUG USE UNTILL FIRST TRIMESTER
     Route: 048
     Dates: start: 20160602
  2. LISINOPRIL. [Concomitant]
     Active Substance: LISINOPRIL
     Dosage: GESTATIONAL AGE AT FIRST EXPOSURE: 22 WEEKS AND 2 DAYS.?GESTATIONAL AGE AT LAST EXPOSURE: UNKNOWN
     Route: 048
     Dates: start: 20160831
  3. DICLEGIS [Concomitant]
     Active Substance: DOXYLAMINE SUCCINATE\PYRIDOXINE HYDROCHLORIDE
     Indication: VOMITING IN PREGNANCY
     Dosage: DOSE: 10-10 MG, 1 TABLET IN MORNING, 2 TABLETS EACH AT NIGHT, GESTATIONAL AGE AT FIRST EXPOSURE: 4 W
     Route: 065
     Dates: start: 20160503, end: 20160511
  4. MYCOPHENOLATE MOFETIL. [Suspect]
     Active Substance: MYCOPHENOLATE MOFETIL
     Indication: LUPUS NEPHRITIS
     Dosage: DRUG USE DURING FIRST TRIMESTER
     Route: 048
     Dates: start: 20151210, end: 20160429
  5. PREDNISONE. [Concomitant]
     Active Substance: PREDNISONE
     Indication: LUPUS NEPHRITIS
     Dosage: DRUG USE UNTILL FIRST TRIMESTER
     Route: 048
     Dates: start: 20160602
  6. PREDNISONE. [Concomitant]
     Active Substance: PREDNISONE
     Dosage: PRIOR TO BECOMING PREGNANT AND DRUG USE UNTILL TWO TRIMESTER?GESTATIONAL AGE AT LAST EXPOSURE: UNKNO
     Route: 048
     Dates: start: 20140319
  7. PLAQUENIL [Concomitant]
     Active Substance: HYDROXYCHLOROQUINE SULFATE
     Dosage: PRIOR TO BECOMING PREGNANT AND DRUG USE UNTILL TWO TRIMESTER?GESTATIONAL AGE AT LAST EXPOSURE: UNKNO
     Route: 048
     Dates: start: 20140319
  8. ZOFRAN [Concomitant]
     Active Substance: ONDANSETRON HYDROCHLORIDE
     Indication: NAUSEA
     Dosage: GESTATIONAL AGE AT FIRST EXPOSURE: 19 WEEKS 3 DAYS.?GESTATIONAL AGE AT LAST EXPOSURE: UNKNOWN?DRUG U
     Route: 065
     Dates: start: 20160811
  9. PREDNISONE. [Concomitant]
     Active Substance: PREDNISONE
     Dosage: GESTATIONAL AGE AT FIRST EXPOSURE: 14 WEEKS AND 3 DAYS.
     Route: 048
     Dates: start: 20160707
  10. EFFEXOR XR [Concomitant]
     Active Substance: VENLAFAXINE HYDROCHLORIDE
     Indication: DEPRESSION
  11. LISINOPRIL. [Concomitant]
     Active Substance: LISINOPRIL
     Indication: LUPUS NEPHRITIS
     Dosage: GESTATIONAL AGE AT LAST EXPOSURE: 5 WEEKS AND 5 DAYS.
     Route: 048
     Dates: start: 20160405, end: 20160510
  12. DICLEGIS [Concomitant]
     Active Substance: DOXYLAMINE SUCCINATE\PYRIDOXINE HYDROCHLORIDE
     Indication: VOMITING IN PREGNANCY
  13. LABETALOL [Concomitant]
     Active Substance: LABETALOL\LABETALOL HYDROCHLORIDE
     Indication: BLOOD PRESSURE MEASUREMENT
     Dosage: GESTATIONAL AGE AT FIRST EXPOSURE: 23 WEEKS AND 4 DAYS.?GESTATIONAL AGE AT LAST EXPOSURE: UNKNOWN?DR
     Route: 065
     Dates: start: 20160915
  14. ASPIRIN. [Concomitant]
     Active Substance: ASPIRIN
     Indication: PRODUCT USED FOR UNKNOWN INDICATION
     Dosage: GESTATIONAL AGE AT FIRST EXPOSURE 19 WEEKS 1 DAY?GESTATIONAL AGE AT LAST EXPOSURE : UNKNOWN?DRUG USE
     Route: 065
     Dates: start: 20160809
  15. PLAQUENIL [Concomitant]
     Active Substance: HYDROXYCHLOROQUINE SULFATE
     Indication: LUPUS NEPHRITIS
     Route: 048
     Dates: start: 20160602
  16. EFFEXOR XR [Concomitant]
     Active Substance: VENLAFAXINE HYDROCHLORIDE
     Indication: ANXIETY
     Dosage: GESTATIONAL AGE AT FIRST EXPOSURE: 5 WEEKS AND 6 DAYS.?GESTATIONAL AGE AT LAST EXPOSURE: 15 WEEKS AN
     Route: 065
     Dates: start: 20160508

REACTIONS (2)
  - Death neonatal [Unknown]
  - Maternal exposure during pregnancy [Unknown]

NARRATIVE: CASE EVENT DATE: 20160924
